FAERS Safety Report 5581444-1 (Version None)
Quarter: 2007Q4

REPORT INFORMATION
  Report Type: 
  Country: None (occurrence: None)
  Receive Date: 20071231
  Receipt Date: 20071231
  Transmission Date: 20080405
  Serious: No
  Sender: FDA-Public Use
  Company Number: None

PATIENT
  Age: 57 Year
  Sex: Male
  Weight: 79.3795 kg

DRUGS (1)
  1. CHANTIX [Suspect]
     Indication: SMOKING CESSATION THERAPY
     Dosage: TAB   1-2 DAILY  PO
     Route: 048
     Dates: start: 20071001, end: 20071201

REACTIONS (4)
  - AGGRESSION [None]
  - DEPRESSION [None]
  - MOOD SWINGS [None]
  - SUICIDAL IDEATION [None]
